FAERS Safety Report 8529644-2 (Version None)
Quarter: 2012Q3

REPORT INFORMATION
  Report Type: 
  Country: None (occurrence: None)
  Receive Date: 20120723
  Receipt Date: 20120619
  Transmission Date: 20120928
  Serious: No
  Sender: FDA-Public Use
  Company Number: US-ASTRAZENECA-2012SE33786

PATIENT
  Age: 46 Year
  Sex: Female
  Weight: 89.8 kg

DRUGS (6)
  1. ADVIL [Concomitant]
     Indication: PAIN
  2. OTC MEDICATIONS [Suspect]
     Route: 065
  3. MOTRIN [Concomitant]
     Indication: PAIN
  4. NEXIUM [Suspect]
     Indication: GASTROOESOPHAGEAL REFLUX DISEASE
     Route: 048
     Dates: start: 20010101
  5. VALIUM [Concomitant]
     Indication: PAIN
  6. LEVOTHYROXINE SODIUM [Concomitant]
     Indication: THYROID DISORDER

REACTIONS (5)
  - DRUG INEFFECTIVE [None]
  - INTENTIONAL DRUG MISUSE [None]
  - GASTROOESOPHAGEAL REFLUX DISEASE [None]
  - THROAT IRRITATION [None]
  - DRUG DOSE OMISSION [None]
